FAERS Safety Report 7293050-1 (Version None)
Quarter: 2011Q1

REPORT INFORMATION
  Report Type: 
  Country: None (occurrence: None)
  Receive Date: 20110215
  Receipt Date: 20110209
  Transmission Date: 20110831
  Serious: Yes (Other)
  Sender: FDA-Public Use
  Company Number: US-PFIZER INC-US-WYE-H15222910

PATIENT
  Sex: Female

DRUGS (2)
  1. BENICAR HCT [Suspect]
     Dosage: UNK
     Route: 065
     Dates: start: 20100401
  2. PRISTIQ [Suspect]
     Dosage: UNK
     Route: 065
     Dates: start: 20100401

REACTIONS (1)
  - BLOOD PRESSURE INCREASED [None]
